FAERS Safety Report 10866206 (Version 1)
Quarter: 2015Q1

REPORT INFORMATION
  Report Type: Spontaneous
  Country: DE (occurrence: None)
  Receive Date: 20150219
  Receipt Date: 20150219
  Transmission Date: 20150721
  Serious: Yes (Congenital Anomaly)
  Sender: FDA-Public Use
  Company Number: IPC201502-000081

PATIENT

DRUGS (2)
  1. ALLOPURINOL (ALLOPURINOL)(ALLOPURINOL) [Suspect]
     Active Substance: ALLOPURINOL
     Indication: HYPERURICAEMIA
  2. CALCITRIOL. [Concomitant]
     Active Substance: CALCITRIOL

REACTIONS (3)
  - Maternal drugs affecting foetus [None]
  - Congenital hypoparathyroidism [None]
  - Premature baby [None]
